FAERS Safety Report 5028755-6 (Version None)
Quarter: 2006Q2

REPORT INFORMATION
  Report Type: 
  Country: None (occurrence: None)
  Receive Date: 20060619
  Receipt Date: 20050131
  Transmission Date: 20061013
  Serious: No
  Sender: FDA-Public Use
  Company Number: US-BRISTOL-MYERS SQUIBB COMPANY-12845103

PATIENT
  Sex: Male

DRUGS (1)
  1. MUTAMYCIN [Suspect]
     Indication: NEOPLASM MALIGNANT

REACTIONS (1)
  - ADVERSE EVENT [None]
